FAERS Safety Report 9169872 (Version 2)
Quarter: 2013Q2

REPORT INFORMATION
  Report Type: Spontaneous
  Country: US (occurrence: US)
  Receive Date: 20130319
  Receipt Date: 20130607
  Transmission Date: 20140414
  Serious: No
  Sender: FDA-Public Use
  Company Number: US-009507513-1303USA008498

PATIENT
  Age: 17 Year
  Sex: Female
  Weight: 114.74 kg

DRUGS (1)
  1. IMPLANON [Suspect]
     Indication: CONTRACEPTION
     Dosage: ONE ROD
     Route: 059
     Dates: start: 20120719, end: 20130419

REACTIONS (7)
  - Implant site pain [Recovered/Resolved]
  - Device dislocation [Unknown]
  - Discomfort [Recovered/Resolved]
  - Discomfort [Recovered/Resolved]
  - Device dislocation [Unknown]
  - Device dislocation [Unknown]
  - Procedural pain [Recovered/Resolved]
